FAERS Safety Report 24208617 (Version 2)
Quarter: 2024Q3

REPORT INFORMATION
  Report Type: Report from Study
  Country: US (occurrence: US)
  Receive Date: 20240814
  Receipt Date: 20240816
  Transmission Date: 20241016
  Serious: Yes (Hospitalization, Other)
  Sender: ROCHE
  Company Number: US-ROCHE-10000054651

PATIENT
  Age: 72 Year
  Sex: Male
  Weight: 74.84 kg

DRUGS (1)
  1. OCREVUS [Suspect]
     Active Substance: OCRELIZUMAB
     Indication: Relapsing multiple sclerosis
     Dosage: DATE OF SERVICE: 04/AUG/2024
     Route: 050

REACTIONS (7)
  - Pancreatitis necrotising [Unknown]
  - Septic shock [Unknown]
  - Cholelithiasis [Unknown]
  - Pain [Unknown]
  - Weight decreased [Recovered/Resolved]
  - Gallbladder disorder [Recovering/Resolving]
  - Pancreatitis [Recovered/Resolved]

NARRATIVE: CASE EVENT DATE: 20240401
